FAERS Safety Report 24562638 (Version 1)
Quarter: 2024Q4

REPORT INFORMATION
  Report Type: Spontaneous
  Country: GB (occurrence: None)
  Receive Date: 20241029
  Receipt Date: 20241029
  Transmission Date: 20250115
  Serious: Yes (Other)
  Sender: ETHYPHARM
  Company Number: None

PATIENT

DRUGS (5)
  1. BUPRENORPHINE [Suspect]
     Active Substance: BUPRENORPHINE
     Indication: Dependence
     Dosage: 6MG
     Dates: end: 20241018
  2. Local data (GDPR) [Concomitant]
  3. Local data (GDPR) [Concomitant]
  4. Local data (GDPR) [Concomitant]
  5. Local data (GDPR) [Concomitant]

REACTIONS (5)
  - Muscular weakness [Recovered/Resolved]
  - Tremor [Recovered/Resolved]
  - Hyperhidrosis [Recovered/Resolved]
  - Speech disorder [Recovered/Resolved]
  - Decreased appetite [Recovered/Resolved]

NARRATIVE: CASE EVENT DATE: 20241016
